FAERS Safety Report 15256142 (Version 1)
Quarter: 2018Q3

REPORT INFORMATION
  Report Type: Spontaneous
  Country: DK (occurrence: DK)
  Receive Date: 20180808
  Receipt Date: 20180808
  Transmission Date: 20181010
  Serious: Yes (Hospitalization, Disabling)
  Sender: FDA-Public Use
  Company Number: DK-JNJFOC-20180807098

PATIENT
  Age: 73 Year
  Sex: Male
  Weight: 110 kg

DRUGS (3)
  1. XARELTO [Suspect]
     Active Substance: RIVAROXABAN
     Indication: ATRIAL FIBRILLATION
     Route: 048
     Dates: start: 20180505, end: 20180620
  2. ALLOPURINOL. [Concomitant]
     Active Substance: ALLOPURINOL
     Indication: GOUT
     Route: 048
  3. METOPROLOL. [Concomitant]
     Active Substance: METOPROLOL
     Indication: ATRIAL FIBRILLATION
     Route: 048
     Dates: start: 20160505

REACTIONS (5)
  - Paresis [Unknown]
  - Facial paralysis [Unknown]
  - Hemiplegia [Unknown]
  - Cerebral haemorrhage [Recovered/Resolved with Sequelae]
  - Aphasia [Unknown]

NARRATIVE: CASE EVENT DATE: 20180620
